FAERS Safety Report 25445944 (Version 3)
Quarter: 2025Q3

REPORT INFORMATION
  Report Type: Spontaneous
  Country: US (occurrence: US)
  Receive Date: 20250617
  Receipt Date: 20250729
  Transmission Date: 20251020
  Serious: Yes (Other)
  Sender: TAKEDA
  Company Number: US-TAKEDA-2025TUS054995

PATIENT
  Sex: Male

DRUGS (2)
  1. MOTEGRITY [Suspect]
     Active Substance: PRUCALOPRIDE SUCCINATE
     Indication: Product used for unknown indication
  2. MOTEGRITY [Suspect]
     Active Substance: PRUCALOPRIDE SUCCINATE

REACTIONS (3)
  - Deafness [Unknown]
  - Product physical issue [Unknown]
  - Product packaging quantity issue [Unknown]
